FAERS Safety Report 25907506 (Version 1)
Quarter: 2025Q4

REPORT INFORMATION
  Report Type: Spontaneous
  Country: US (occurrence: None)
  Receive Date: 20251009
  Receipt Date: 20251009
  Transmission Date: 20260118
  Serious: Yes (Other)
  Sender: FDA-CTU
  Company Number: None

PATIENT
  Age: 88 Year
  Sex: Female
  Weight: 162.6 kg

DRUGS (3)
  1. DEFINITY [Suspect]
     Active Substance: PERFLUTREN
     Indication: Chest pain
     Route: 042
  2. DEFINITY [Suspect]
     Active Substance: PERFLUTREN
     Indication: Dyspnoea
  3. DEFINITY [Suspect]
     Active Substance: PERFLUTREN
     Indication: Atrial fibrillation

REACTIONS (2)
  - Back pain [None]
  - Contrast media reaction [None]

NARRATIVE: CASE EVENT DATE: 20251009
